FAERS Safety Report 13125700 (Version 1)
Quarter: 2017Q1

REPORT INFORMATION
  Report Type: Not Available
  Country: IT (occurrence: IT)
  Receive Date: 20170118
  Receipt Date: 20170118
  Transmission Date: 20170428
  Serious: Yes (Other)
  Sender: FDA-Public Use
  Company Number: IT-IDTAUSTRALIA-2017-IT-000001

PATIENT
  Age: 64 Year
  Sex: Female

DRUGS (1)
  1. CIPROFLOXACIN (NON-SPECIFIC) [Suspect]
     Active Substance: CIPROFLOXACIN
     Route: 065

REACTIONS (2)
  - Skin reaction [Unknown]
  - Pulmonary eosinophilia [Recovered/Resolved]
